FAERS Safety Report 9522120 (Version 1)
Quarter: 2013Q3

REPORT INFORMATION
  Report Type: Spontaneous
  Country: US (occurrence: None)
  Receive Date: 20130827
  Receipt Date: 20130827
  Transmission Date: 20140515
  Serious: Yes (Hospitalization)
  Sender: FDA-Public Use
  Company Number: 2011028202

PATIENT
  Sex: Female
  Weight: 89.81 kg

DRUGS (34)
  1. HIZENTRA [Suspect]
     Indication: HYPOGAMMAGLOBULINAEMIA
     Dosage: 13 G 1X/WEEK, 1 GM 5 ML; 65 ML IN 1-2 HOURS USING 3-4 SITES)
     Route: 058
  2. PREDNISONE (PREDNISONE) [Concomitant]
  3. ENTOCORT (BUDESONIDE) [Concomitant]
  4. PATANASE (OLOPATADINE) [Concomitant]
  5. THEO-DUR (THEOPHYLLINE) [Concomitant]
  6. VERAMYST (FLUTICASONE) [Concomitant]
  7. HYDROCORTISONE (HYDROCORTISONE) [Concomitant]
  8. TYLENOL / CODEINE (PANADEINE CO) [Concomitant]
  9. VERAPAMIL (VERAPAMIL) [Concomitant]
  10. METOCLOPRAMIDE (METOCLOPRAMIDE) [Concomitant]
  11. TYLENOL (PARACETAMOL) [Concomitant]
  12. ALEVE (NAPROXEN SODIUM) [Concomitant]
  13. SINGULAIR [Concomitant]
  14. MAXALT (RIZATRIPTAN) [Concomitant]
  15. PRILOSEC [Concomitant]
  16. XANAX (ALPRAZOLAM) [Concomitant]
  17. PAXIL (PAROXETINE HYDROCHLORIDE) [Concomitant]
  18. ZOMIG (ZOLMITRIPTAN) [Concomitant]
  19. LASIX (FUROSEMIDE) [Concomitant]
  20. TOPAMAX (TOPIRAMATE) [Concomitant]
  21. ALBUTEROL (SALBUTAMOL) [Concomitant]
  22. TRILEPTAL (OXCARBAZEPINE) [Concomitant]
  23. LAMICTAL (LAMOTRIGINE) [Concomitant]
  24. ADVAIR (SERETIDE / 01420901) [Concomitant]
  25. DIOVAN (VALSARTAN) [Concomitant]
  26. DIPHENHYDRAMINE (DIPHENHYDRAMINE) [Concomitant]
  27. EPI-PEN (EPINEPHRINE) [Concomitant]
  28. LMX (LIDOCAINE) [Concomitant]
  29. POLYSPORIN (POLYSPORIN / 00259001) [Concomitant]
  30. PERCOCET (OXYCOCET) [Concomitant]
  31. LOVENOX (ENOXAPARIN SODIUM) [Concomitant]
  32. DOXYCYCLINE (DOXYCYCLINE) [Concomitant]
  33. HYDROCHLOROTHIAZIDE (HYDROCHLOROTHIAZIDE) [Concomitant]
  34. KLOR-CON (POTASSIUM CHLORIDE) [Concomitant]

REACTIONS (2)
  - Infusion site pruritus [None]
  - Swollen tongue [None]
